FAERS Safety Report 18777859 (Version 4)
Quarter: 2021Q2

REPORT INFORMATION
  Report Type: Spontaneous
  Country: US (occurrence: US)
  Receive Date: 20210122
  Receipt Date: 20210604
  Transmission Date: 20210717
  Serious: Yes (Other)
  Sender: FDA-Public Use
  Company Number: 2020SGN03506

PATIENT
  Age: 45 Year
  Sex: Female
  Weight: 55.42 kg

DRUGS (17)
  1. TAMOXIFEN [Concomitant]
     Active Substance: TAMOXIFEN
     Dosage: 20 MG, QD
  2. QUETIAPINE. [Concomitant]
     Active Substance: QUETIAPINE
     Dosage: 100 MG
  3. ONDANSETRON [Concomitant]
     Active Substance: ONDANSETRON
     Dosage: 8 MG
  4. TUKYSA [Suspect]
     Active Substance: TUCATINIB
     Dosage: 250 MG, BID
     Dates: start: 20200925, end: 20201110
  5. XELODA [Suspect]
     Active Substance: CAPECITABINE
     Indication: PRODUCT USED FOR UNKNOWN INDICATION
     Dosage: 500 MG
     Dates: start: 20200701
  6. TUKYSA [Suspect]
     Active Substance: TUCATINIB
     Dosage: 150 UNK
     Dates: start: 20201111, end: 20210305
  7. TUKYSA [Suspect]
     Active Substance: TUCATINIB
     Dosage: 200 MG, BID
     Route: 048
     Dates: start: 20201111
  8. TRASTUZUMAB. [Concomitant]
     Active Substance: TRASTUZUMAB
     Dosage: UNK
     Dates: start: 20200701
  9. DEXAMETHASONE. [Concomitant]
     Active Substance: DEXAMETHASONE
     Dosage: 2 MG
  10. VITAMIN D3 [Concomitant]
     Active Substance: CHOLECALCIFEROL
     Dosage: 400 IU
  11. ENHERTU [TRASTUZUMAB DERUXTECAN NXKI] [Concomitant]
     Dosage: Q3W
  12. ZARXIO [Concomitant]
     Active Substance: FILGRASTIM-SNDZ
     Dosage: 480 ?G SC Q3D
     Route: 058
  13. TUKYSA [Suspect]
     Active Substance: TUCATINIB
     Indication: HER2 POSITIVE BREAST CANCER
     Dosage: 200 MG, BID
     Route: 048
     Dates: start: 20200703, end: 20201021
  14. TUKYSA [Suspect]
     Active Substance: TUCATINIB
     Dosage: 100 MG, BID
     Route: 048
     Dates: start: 20200703, end: 20210330
  15. TUKYSA [Suspect]
     Active Substance: TUCATINIB
     Dosage: 50 UNK
     Dates: end: 20210322
  16. ZOMETA [Concomitant]
     Active Substance: ZOLEDRONIC ACID
     Dosage: 4 MG
  17. VENLAFAXINE [Concomitant]
     Active Substance: VENLAFAXINE HYDROCHLORIDE

REACTIONS (17)
  - Metastases to central nervous system [Unknown]
  - Diarrhoea [Unknown]
  - Back pain [Unknown]
  - Loss of personal independence in daily activities [Unknown]
  - Feeling abnormal [Unknown]
  - Anal incontinence [Recovering/Resolving]
  - Transaminases increased [Unknown]
  - Liver disorder [Unknown]
  - Abdominal pain [Recovering/Resolving]
  - Eye operation [Unknown]
  - Asthenia [Unknown]
  - Liver function test increased [Recovered/Resolved]
  - Illness [Unknown]
  - Headache [Unknown]
  - Drug ineffective [Unknown]
  - Alanine aminotransferase increased [Unknown]
  - Aspartate aminotransferase increased [Unknown]

NARRATIVE: CASE EVENT DATE: 20200819
